FAERS Safety Report 8796725 (Version 2)
Quarter: 2013Q1

REPORT INFORMATION
  Report Type: Spontaneous
  Country: AU (occurrence: AU)
  Receive Date: 20120919
  Receipt Date: 20130118
  Transmission Date: 20140127
  Serious: Yes (Death, Hospitalization, Other)
  Sender: FDA-Public Use
  Company Number: PHHY2012AU081233

PATIENT
  Age: 87 None
  Sex: Female

DRUGS (6)
  1. ACLASTA [Suspect]
     Indication: OSTEOPOROSIS
     Dosage: 5 MG (5MG/100ML), UNK
     Route: 042
     Dates: start: 20091012
  2. ACLASTA [Suspect]
     Dosage: 5 MG, UNK
     Route: 042
     Dates: start: 20100906
  3. ACLASTA [Suspect]
     Dosage: 5 MG, UNK
     Route: 042
     Dates: start: 20111030
  4. ASTRIX [Concomitant]
     Dosage: 100 MG, QD
     Route: 048
  5. SOMAC [Concomitant]
     Dosage: 40 MG, QD
     Route: 048
  6. SOTALOL HYDROCHLORIDE [Concomitant]
     Dosage: 80 MG, BID
     Route: 048

REACTIONS (21)
  - Death [Fatal]
  - Fall [Not Recovered/Not Resolved]
  - Confusional state [Not Recovered/Not Resolved]
  - Paralysis [Not Recovered/Not Resolved]
  - Pallor [Not Recovered/Not Resolved]
  - Thoracic vertebral fracture [Unknown]
  - Back pain [Unknown]
  - Spinal compression fracture [Unknown]
  - Malaise [Unknown]
  - Urinary tract infection [Unknown]
  - Stress urinary incontinence [Unknown]
  - Benign breast neoplasm [Unknown]
  - Breast pain [Unknown]
  - Tricuspid valve incompetence [Unknown]
  - Atrial fibrillation [Unknown]
  - Memory impairment [Unknown]
  - Skin injury [Unknown]
  - Contusion [Unknown]
  - Hyponatraemia [Unknown]
  - Gastrooesophageal reflux disease [Unknown]
  - Abdominal discomfort [Unknown]
